FAERS Safety Report 8910226 (Version 3)
Quarter: 2012Q4

REPORT INFORMATION
  Report Type: 
  Country: JP (occurrence: JP)
  Receive Date: 20121115
  Receipt Date: 20121221
  Transmission Date: 20130627
  Serious: Yes (Other)
  Sender: FDA-Public Use
  Company Number: JP-VERTEX PHARMACEUTICAL INC.-2012-024388

PATIENT
  Age: 61 Year
  Sex: Male

DRUGS (9)
  1. TELAVIC [Suspect]
     Indication: CHRONIC HEPATITIS C
     Dosage: 1500 mg, qd
     Route: 048
     Dates: start: 20121102, end: 20121105
  2. PEGINTERFERON ALFA-2B [Suspect]
     Indication: CHRONIC HEPATITIS C
     Dosage: 1.5 ?g/kg, qw
     Route: 058
     Dates: start: 20121102
  3. RIBAVIRIN [Concomitant]
     Dosage: 1000 mg, qd
     Route: 048
     Dates: start: 20121102, end: 20121105
  4. RIBAVIRIN [Concomitant]
     Dosage: 1000 mg, qd
     Route: 048
     Dates: start: 20121108
  5. URSO                               /00465701/ [Concomitant]
     Dosage: 600 mg, qd
     Route: 048
  6. GLYCYRON                           /00466401/ [Concomitant]
     Dosage: 9 DF, qd
     Route: 048
  7. MYSLEE [Concomitant]
     Dosage: 5 mg, qd
     Route: 048
     Dates: start: 20121031
  8. BLOPRESS [Concomitant]
     Dosage: 4 mg, qd
     Route: 048
     Dates: start: 20121101
  9. GASTER [Concomitant]
     Dosage: 20 mg, qd
     Route: 048
     Dates: start: 20121106

REACTIONS (2)
  - Drug eruption [Recovered/Resolved]
  - Pyrexia [Recovered/Resolved]
